FAERS Safety Report 6778873-7 (Version None)
Quarter: 2010Q2

REPORT INFORMATION
  Report Type: 
  Country: None (occurrence: None)
  Receive Date: 20100618
  Receipt Date: 20100518
  Transmission Date: 20101027
  Serious: No
  Sender: FDA-Public Use
  Company Number: US-BAYER-201014153BCC

PATIENT
  Age: 67 Year
  Sex: Female
  Weight: 48 kg

DRUGS (4)
  1. ALEVE (CAPLET) [Suspect]
     Indication: BACK PAIN
     Dosage: UNIT DOSE: 220 MG
     Route: 048
     Dates: start: 20100201, end: 20100301
  2. ALEVE (CAPLET) [Suspect]
     Dosage: AS USED: 440 MG  UNIT DOSE: 220 MG
     Route: 048
     Dates: start: 20100301
  3. ALEVE (CAPLET) [Suspect]
     Dosage: UNIT DOSE: 220 MG
     Route: 048
  4. PREDZONE [Concomitant]

REACTIONS (2)
  - ARTHRALGIA [None]
  - POLYARTHRITIS [None]
